FAERS Safety Report 9027456 (Version 1)
Quarter: 2013Q1

REPORT INFORMATION
  Report Type: Spontaneous
  Country: US (occurrence: US)
  Receive Date: 20130124
  Receipt Date: 20130124
  Transmission Date: 20140127
  Serious: No
  Sender: FDA-Public Use
  Company Number: US-009507513-1301USA009761

PATIENT
  Sex: Female

DRUGS (3)
  1. COZAAR [Suspect]
     Indication: HYPERTENSION
     Dosage: 100 MG, QD
     Route: 048
     Dates: start: 199301
  2. HYDROCHLOROTHIAZIDE [Concomitant]
  3. DOXYCYCLINE [Concomitant]

REACTIONS (1)
  - Drug ineffective [Not Recovered/Not Resolved]
